FAERS Safety Report 24589371 (Version 1)
Quarter: 2024Q4

REPORT INFORMATION
  Report Type: Spontaneous
  Country: US (occurrence: None)
  Receive Date: 20241106
  Receipt Date: 20241106
  Transmission Date: 20250114
  Serious: Yes (Hospitalization)
  Sender: Public
  Company Number: None

PATIENT
  Age: 85 Year
  Sex: Male

DRUGS (1)
  1. APIXABAN [Suspect]
     Active Substance: APIXABAN
     Indication: Deep vein thrombosis
     Dates: end: 20240822

REACTIONS (5)
  - Presyncope [None]
  - Pulmonary embolism [None]
  - Disease recurrence [None]
  - Product use issue [None]
  - Orthostatic hypotension [None]

NARRATIVE: CASE EVENT DATE: 20240816
